FAERS Safety Report 13534483 (Version 1)
Quarter: 2017Q2

REPORT INFORMATION
  Report Type: Spontaneous
  Country: US (occurrence: US)
  Receive Date: 20170510
  Receipt Date: 20170510
  Transmission Date: 20170830
  Serious: No
  Sender: FDA-Public Use
  Company Number: None

PATIENT
  Sex: Female

DRUGS (1)
  1. HUMIRA [Suspect]
     Active Substance: ADALIMUMAB
     Indication: PSORIASIS
     Dosage: DOSE - 1 PEN
     Route: 058
     Dates: start: 20170306

REACTIONS (4)
  - Dyspnoea [None]
  - Fatigue [None]
  - Muscle spasms [None]
  - Myalgia [None]
